FAERS Safety Report 25380653 (Version 1)
Quarter: 2025Q2

REPORT INFORMATION
  Report Type: Spontaneous
  Country: AT (occurrence: AT)
  Receive Date: 20250530
  Receipt Date: 20250530
  Transmission Date: 20250717
  Serious: Yes (Other)
  Sender: TRAVERE THERAPEUTICS
  Company Number: AT-BEH-2025207000

PATIENT
  Age: 54 Year
  Sex: Male

DRUGS (7)
  1. FILSPARI [Suspect]
     Active Substance: SPARSENTAN
     Indication: Product used for unknown indication
     Route: 048
     Dates: start: 20241127, end: 20250417
  2. CORTISONE [Concomitant]
     Active Substance: CORTISONE
     Dates: start: 202505
  3. LERCANIDIPINE [Concomitant]
     Active Substance: LERCANIDIPINE
  4. DAPAGLIFLOZIN [Concomitant]
     Active Substance: DAPAGLIFLOZIN
  5. INDAPAMIDE [Concomitant]
     Active Substance: INDAPAMIDE
  6. ATORVASTATIN [Concomitant]
     Active Substance: ATORVASTATIN
  7. ALLOPURINOL [Concomitant]
     Active Substance: ALLOPURINOL

REACTIONS (4)
  - Drug-induced liver injury [Unknown]
  - Pulmonary embolism [Unknown]
  - Gout [Unknown]
  - Hepatic function abnormal [Unknown]

NARRATIVE: CASE EVENT DATE: 20250101
